FAERS Safety Report 8960768 (Version 1)
Quarter: 2012Q4

REPORT INFORMATION
  Report Type: Spontaneous
  Country: US (occurrence: None)
  Receive Date: 20121211
  Receipt Date: 20121211
  Transmission Date: 20130627
  Serious: Yes (Death)
  Sender: FDA-Public Use
  Company Number: None

PATIENT
  Age: 67 Year
  Sex: Female
  Weight: 61.24 kg

DRUGS (1)
  1. CIPRO [Suspect]
     Dosage: 5 days, 2x daily

REACTIONS (2)
  - Dyspnoea [None]
  - Blood pressure increased [None]
